FAERS Safety Report 6969068-2 (Version None)
Quarter: 2010Q3

REPORT INFORMATION
  Report Type: 
  Country: None (occurrence: None)
  Receive Date: 20100903
  Receipt Date: 20100903
  Transmission Date: 20110219
  Serious: Yes (Death)
  Sender: FDA-Public Use
  Company Number: None

PATIENT
  Age: 29 Year
  Sex: Male
  Weight: 77.1115 kg

DRUGS (3)
  1. SEROQUEL [Suspect]
  2. LEXAPRO [Suspect]
  3. CLONAZEPAM [Suspect]

REACTIONS (2)
  - CARDIAC ARREST [None]
  - WEIGHT INCREASED [None]
